FAERS Safety Report 5672570-7 (Version None)
Quarter: 2008Q1

REPORT INFORMATION
  Report Type: 
  Country: None (occurrence: None)
  Receive Date: 20080319
  Receipt Date: 20080312
  Transmission Date: 20080703
  Serious: Yes (Hospitalization, Other)
  Sender: FDA-Public Use
  Company Number: PHHY2008JP02035

PATIENT
  Age: 53 Year
  Sex: Female

DRUGS (12)
  1. TEGRETOL [Suspect]
     Indication: STATUS EPILEPTICUS
     Dosage: 400 MG
     Route: 048
     Dates: start: 20070413, end: 20070419
  2. TEGRETOL [Suspect]
     Dosage: 600 MG
     Route: 048
     Dates: start: 20070427, end: 20070521
  3. CATECHOLAMINES [Concomitant]
     Indication: HYPOTENSION
  4. STEROIDS NOS [Concomitant]
  5. ALEVIATIN [Suspect]
     Indication: STATUS EPILEPTICUS
     Dosage: 500 MG
     Dates: start: 20070407, end: 20070413
  6. ZONISAMIDE [Suspect]
     Indication: STATUS EPILEPTICUS
     Dosage: 400 MG
     Route: 048
     Dates: start: 20070418, end: 20070426
  7. ZONISAMIDE [Suspect]
     Dosage: 600 MG
     Route: 048
     Dates: start: 20070427
  8. MYSTAN [Suspect]
     Indication: STATUS EPILEPTICUS
     Dosage: 10 MG
     Route: 048
     Dates: start: 20070420, end: 20070427
  9. PHENOBAL [Suspect]
     Indication: STATUS EPILEPTICUS
     Dosage: 400 MG
     Route: 048
     Dates: start: 20070427, end: 20070507
  10. PHENOBAL [Suspect]
     Dosage: 800 MG
     Route: 048
     Dates: start: 20070507, end: 20070525
  11. PHENOBAL [Suspect]
     Dosage: 600 MG
     Route: 048
     Dates: start: 20070525, end: 20070603
  12. PHENOBAL [Suspect]
     Dosage: 300 MG
     Route: 048
     Dates: start: 20070604, end: 20070607

REACTIONS (16)
  - ABSCESS DRAINAGE [None]
  - BLOOD CORTICOTROPHIN DECREASED [None]
  - BLOOD THYROID STIMULATING HORMONE INCREASED [None]
  - CARDIOVASCULAR DISORDER [None]
  - CONTINUOUS HAEMODIAFILTRATION [None]
  - CONVULSION [None]
  - DEEP VEIN THROMBOSIS [None]
  - HYPOTENSION [None]
  - HYPOTHALAMO-PITUITARY DISORDER [None]
  - HYPOTHYROIDISM [None]
  - PYREXIA [None]
  - RENAL FAILURE ACUTE [None]
  - SOMNOLENCE [None]
  - THYROXINE DECREASED [None]
  - THYROXINE FREE DECREASED [None]
  - TRI-IODOTHYRONINE DECREASED [None]
